FAERS Safety Report 4296024-8 (Version None)
Quarter: 2004Q1

REPORT INFORMATION
  Report Type: 
  Country: None (occurrence: None)
  Receive Date: 20040212
  Receipt Date: 20040123
  Transmission Date: 20041129
  Serious: Yes (Hospitalization)
  Sender: FDA-Public Use
  Company Number: A02200400254

PATIENT
  Age: 80 Year
  Sex: Male

DRUGS (3)
  1. XATRAL- (ALFUZOSIN) - TABLET [Suspect]
     Indication: BENIGN NEOPLASM OF PROSTATE
     Dosage: ORAL
     Route: 048
     Dates: start: 20020815, end: 20030215
  2. DIGOXIN [Concomitant]
  3. NITROGLYCERIN [Concomitant]

REACTIONS (8)
  - CIRCULATORY COLLAPSE [None]
  - COLITIS COLLAGENOUS [None]
  - DEHYDRATION [None]
  - DIARRHOEA [None]
  - DIVERTICULUM [None]
  - HYPOKALAEMIA [None]
  - RENAL FAILURE ACUTE [None]
  - WEIGHT DECREASED [None]
